FAERS Safety Report 6202505-X (Version None)
Quarter: 2009Q2

REPORT INFORMATION
  Report Type: 
  Country: None (occurrence: None)
  Receive Date: 20090518
  Receipt Date: 20090305
  Transmission Date: 20091009
  Serious: No
  Sender: FDA-Public Use
  Company Number: WAES 0903USA01095

PATIENT
  Age: 62 Year
  Sex: Female

DRUGS (8)
  1. JANUVIA [Suspect]
     Indication: DIABETES MELLITUS
     Dosage: 100 MG/DAILY/PO
     Route: 048
     Dates: start: 20080501, end: 20090305
  2. AZMACORT [Concomitant]
  3. MONISTAT [Concomitant]
  4. ALBUTEROL [Concomitant]
  5. ASPIRIN [Concomitant]
  6. FLUCONAZOLE [Concomitant]
  7. LOVASTATIN [Concomitant]
  8. METFORMIN HYDROCHLORIDE [Concomitant]

REACTIONS (2)
  - FUNGAL INFECTION [None]
  - RASH [None]
